FAERS Safety Report 6274896-5 (Version None)
Quarter: 2009Q3

REPORT INFORMATION
  Report Type: 
  Country: None (occurrence: None)
  Receive Date: 20090717
  Receipt Date: 20090710
  Transmission Date: 20100115
  Serious: Yes (Other)
  Sender: FDA-Public Use
  Company Number: 2009SP007145

PATIENT
  Age: 66 Year
  Sex: Male

DRUGS (11)
  1. PEG-INTRON [Suspect]
     Indication: HEPATITIS C
     Dosage: 120 MCG, QW; SC
     Route: 058
     Dates: start: 20081128
  2. REBETOL [Suspect]
     Indication: HEPATITIS C
     Dosage: 1200 MG, QD; PO
     Route: 048
     Dates: start: 20081128, end: 20090320
  3. ELTROMBOPAG (ELTROMBOPAG) [Suspect]
     Indication: THROMBOCYTOPENIA
     Dosage: 25 MG, QD; PO
     Route: 048
     Dates: start: 20081114, end: 20081128
  4. BLINDED ELTROMBOPAG (ELTROMBOPAG) [Suspect]
     Indication: HEPATITIS C
     Dosage: 25 MG, QD, PO, 50 MG, QD, PO
     Route: 048
     Dates: start: 20081129, end: 20090101
  5. BLINDED ELTROMBOPAG (ELTROMBOPAG) [Suspect]
     Indication: HEPATITIS C
     Dosage: 25 MG, QD, PO, 50 MG, QD, PO
     Route: 048
     Dates: start: 20090101, end: 20090319
  6. URSODEOXYCHOLTIC ACID [Concomitant]
  7. LORAZEPAM [Concomitant]
  8. GABAPENTIN [Concomitant]
     Route: 048
  9. EFFERALGAN CODEINE [Concomitant]
  10. ALUMINIUM HYDROXIDE W/MAGNESIUM TRISILICATE [Concomitant]
  11. ACETAMINOPHEN [Concomitant]

REACTIONS (6)
  - ASPARTATE AMINOTRANSFERASE INCREASED [None]
  - BLOOD ALKALINE PHOSPHATASE INCREASED [None]
  - GAMMA-GLUTAMYLTRANSFERASE INCREASED [None]
  - HAEMATOCRIT DECREASED [None]
  - JAUNDICE CHOLESTATIC [None]
  - PLATELET COUNT DECREASED [None]
